FAERS Safety Report 4365572-4 (Version None)
Quarter: 2004Q2

REPORT INFORMATION
  Report Type: 
  Country: None (occurrence: None)
  Receive Date: 20040526
  Receipt Date: 20040318
  Transmission Date: 20050107
  Serious: Yes (Death)
  Sender: FDA-Public Use
  Company Number: US-ROCHE-362248

PATIENT
  Age: 20 Year
  Sex: Male

DRUGS (3)
  1. KLONOPIN [Suspect]
     Indication: DEPRESSION
     Route: 048
     Dates: start: 20030215
  2. XANAX [Concomitant]
     Indication: DEPRESSION
     Route: 048
     Dates: start: 20030215
  3. PAXIL [Concomitant]
     Indication: DEPRESSION
     Route: 048
     Dates: start: 20030215

REACTIONS (7)
  - ACCIDENTAL OVERDOSE [None]
  - ASTHMA [None]
  - DISTURBANCE IN SOCIAL BEHAVIOUR [None]
  - DRUG ABUSER [None]
  - OVERDOSE [None]
  - PERSONALITY CHANGE [None]
  - THEFT [None]
